FAERS Safety Report 10190360 (Version 1)
Quarter: 2014Q2

REPORT INFORMATION
  Report Type: Spontaneous
  Country: GB (occurrence: GB)
  Receive Date: 20140522
  Receipt Date: 20140522
  Transmission Date: 20141212
  Serious: Yes (Other)
  Sender: FDA-Public Use
  Company Number: GB-JNJFOC-20140510885

PATIENT
  Age: 53 Year
  Sex: Male

DRUGS (5)
  1. XARELTO [Suspect]
     Indication: EMBOLISM VENOUS
     Route: 048
     Dates: start: 201206
  2. XARELTO [Suspect]
     Indication: DEEP VEIN THROMBOSIS
     Route: 048
     Dates: start: 201206
  3. SERTRALINE [Concomitant]
     Route: 048
     Dates: start: 201009
  4. VITAMIN B COMPLEX [Concomitant]
     Route: 048
     Dates: start: 200905
  5. DIAZEPAM [Concomitant]
     Route: 048
     Dates: start: 1993

REACTIONS (1)
  - Thyroid function test abnormal [Not Recovered/Not Resolved]
